FAERS Safety Report 4609055-2 (Version None)
Quarter: 2005Q1

REPORT INFORMATION
  Report Type: 
  Country: None (occurrence: None)
  Receive Date: 20050311
  Receipt Date: 20050304
  Transmission Date: 20050727
  Serious: Yes (Hospitalization, Other)
  Sender: FDA-Public Use
  Company Number: TPA2005A00270

PATIENT
  Age: 67 Year
  Sex: Female
  Weight: 83.9154 kg

DRUGS (8)
  1. ACTOS [Suspect]
     Indication: DIABETES MELLITUS
     Dosage: PER ORAL
     Route: 048
     Dates: start: 19990101, end: 20041201
  2. HUMALOG MIX 75/25 [Suspect]
     Indication: DIABETES MELLITUS
     Dosage: 45 U QAM + 30 U QPM, 1 IN 1 D
     Dates: start: 20041201
  3. GLUCOPHAGE [Concomitant]
  4. MICRONASE [Concomitant]
  5. ZESTRIL [Concomitant]
  6. PRAVACHOL [Concomitant]
  7. MACRODANTIN [Concomitant]
  8. ADALAT [Concomitant]

REACTIONS (3)
  - MYOCARDIAL INFARCTION [None]
  - RASH [None]
  - SILENT MYOCARDIAL INFARCTION [None]
